FAERS Safety Report 4760068-X (Version None)
Quarter: 2005Q3

REPORT INFORMATION
  Report Type: 
  Country: None (occurrence: None)
  Receive Date: 20050831
  Receipt Date: 20050822
  Transmission Date: 20060218
  Serious: Yes (Hospitalization)
  Sender: FDA-Public Use
  Company Number: 2005109478

PATIENT
  Age: 57 Year
  Sex: Male
  Weight: 158.759 kg

DRUGS (1)
  1. BEXTRA [Suspect]
     Indication: OSTEOARTHRITIS
     Dosage: 20 MG (20 MG, 1 IN 1 D)
     Dates: start: 20020101

REACTIONS (2)
  - FEELING ABNORMAL [None]
  - KNEE ARTHROPLASTY [None]
